FAERS Safety Report 9408473 (Version 4)
Quarter: 2014Q3

REPORT INFORMATION
  Report Type: Spontaneous
  Country: US (occurrence: None)
  Receive Date: 20130716
  Receipt Date: 20140908
  Transmission Date: 20150326
  Serious: Yes (Death, Hospitalization, Other)
  Sender: FDA-Public Use
  Company Number: 2013US001825

PATIENT
  Age: 86 Year
  Sex: Female
  Weight: 61 kg

DRUGS (11)
  1. ONDANSETRON. [Concomitant]
     Active Substance: ONDANSETRON
  2. HYDROCHLOROTHIAZIDE (HYDROCHLOROTHIAZIDE) [Concomitant]
     Active Substance: HYDROCHLOROTHIAZIDE
  3. LISINOPRIL (LISINOPRIL) [Concomitant]
     Active Substance: LISINOPRIL
  4. AMBIEN [Concomitant]
     Active Substance: ZOLPIDEM TARTRATE
  5. XANAX [Concomitant]
     Active Substance: ALPRAZOLAM
  6. DEFEROXAMINE (DEFEROXAMINE) [Concomitant]
  7. ICLUSIG [Suspect]
     Active Substance: PONATINIB
     Indication: CHRONIC MYELOID LEUKAEMIA
     Route: 048
     Dates: start: 20130505
  8. AMITRIPTYLINE (AMITRIPTYLINE HYDROCHLORIDE) [Concomitant]
  9. REMERON [Concomitant]
     Active Substance: MIRTAZAPINE
  10. LASIX [Concomitant]
     Active Substance: FUROSEMIDE
  11. CELEXA [Concomitant]
     Active Substance: CITALOPRAM HYDROBROMIDE

REACTIONS (26)
  - Haematoma [None]
  - Electrolyte imbalance [None]
  - Aphasia [None]
  - Cerebral haemorrhage [None]
  - Asthenia [None]
  - Suicidal ideation [None]
  - Thrombocytopenia [None]
  - Anxiety [None]
  - Mental status changes [None]
  - Urinary tract infection [None]
  - Weight decreased [None]
  - Delirium [None]
  - Pneumonia [None]
  - Fall [None]
  - Hypoxia [None]
  - Cardiac failure congestive [None]
  - Encephalopathy [None]
  - Dysphagia [None]
  - Hypomagnesaemia [None]
  - Pain in extremity [None]
  - Subdural haematoma [None]
  - Ischaemic cardiomyopathy [None]
  - Depression [None]
  - Pyrexia [None]
  - Poor quality sleep [None]
  - Anaemia [None]

NARRATIVE: CASE EVENT DATE: 201306
